FAERS Safety Report 18580271 (Version 1)
Quarter: 2020Q4

REPORT INFORMATION
  Report Type: Spontaneous
  Country: CN (occurrence: CN)
  Receive Date: 20201204
  Receipt Date: 20201204
  Transmission Date: 20210114
  Serious: Yes (Other)
  Sender: FDA-Public Use
  Company Number: CN-UCBSA-2020050325

PATIENT
  Sex: Female

DRUGS (3)
  1. LEVETIRACETAM. [Suspect]
     Active Substance: LEVETIRACETAM
     Indication: MYOCLONIC EPILEPSY
     Dosage: 30 MILLIGRAM/KILOGRAM/DAY
  2. OXCARBAZEPINE. [Suspect]
     Active Substance: OXCARBAZEPINE
     Indication: MYOCLONIC EPILEPSY
     Dosage: 20 MILLIGRAM/KILOGRAM/DAY
  3. PHENOBARBITAL. [Suspect]
     Active Substance: PHENOBARBITAL
     Indication: MYOCLONIC EPILEPSY
     Dosage: 5 MILLIGRAM/KILOGRAM/DAY

REACTIONS (3)
  - Status epilepticus [Unknown]
  - Off label use [Unknown]
  - Multiple-drug resistance [Unknown]
